FAERS Safety Report 16848454 (Version 3)
Quarter: 2020Q3

REPORT INFORMATION
  Report Type: Not Available
  Country: US (occurrence: US)
  Receive Date: 20190925
  Receipt Date: 20200818
  Transmission Date: 20201102
  Serious: No
  Sender: FDA-Public Use
  Company Number: US-NEUROCRINE BIOSCIENCES INC.-2019NBI02688

PATIENT
  Age: 71 Year
  Sex: Male

DRUGS (3)
  1. INGREZZA [Suspect]
     Active Substance: VALBENAZINE
     Indication: TARDIVE DYSKINESIA
     Route: 048
     Dates: start: 20190813
  2. INGREZZA [Suspect]
     Active Substance: VALBENAZINE
     Route: 048
  3. RITALIN [Concomitant]
     Active Substance: METHYLPHENIDATE HYDROCHLORIDE
     Indication: DISTURBANCE IN ATTENTION
     Route: 048
     Dates: start: 2015

REACTIONS (1)
  - Joint stiffness [Recovered/Resolved]

NARRATIVE: CASE EVENT DATE: 20191023
